FAERS Safety Report 17305401 (Version 2)
Quarter: 2020Q1

REPORT INFORMATION
  Report Type: Spontaneous
  Country: BR (occurrence: BR)
  Receive Date: 20200123
  Receipt Date: 20200128
  Transmission Date: 20200409
  Serious: Yes (Other)
  Sender: FDA-Public Use
  Company Number: BR-ABBVIE-20K-020-3241447-00

PATIENT
  Sex: Female

DRUGS (5)
  1. HUMIRA [Suspect]
     Active Substance: ADALIMUMAB
     Indication: PSORIATIC ARTHROPATHY
     Route: 058
     Dates: start: 201105
  2. ARAVA [Concomitant]
     Active Substance: LEFLUNOMIDE
     Indication: PSORIATIC ARTHROPATHY
     Route: 048
     Dates: start: 201105, end: 2016
  3. HUMIRA [Suspect]
     Active Substance: ADALIMUMAB
     Indication: PSORIATIC ARTHROPATHY
     Route: 058
  4. METHOTREXATE. [Concomitant]
     Active Substance: METHOTREXATE
     Indication: PSORIATIC ARTHROPATHY
     Route: 048
     Dates: start: 201105
  5. METHOTREXATE. [Concomitant]
     Active Substance: METHOTREXATE
     Dates: end: 2018

REACTIONS (18)
  - Abdominal pain [Recovered/Resolved]
  - Irritable bowel syndrome [Not Recovered/Not Resolved]
  - Gluten sensitivity [Unknown]
  - Injection site pain [Recovering/Resolving]
  - Gastrointestinal motility disorder [Unknown]
  - Lactose intolerance [Unknown]
  - Pain [Unknown]
  - Sciatica [Unknown]
  - Amenorrhoea [Unknown]
  - Polyp [Unknown]
  - Dysgeusia [Unknown]
  - Large intestine polyp [Recovering/Resolving]
  - Nausea [Recovered/Resolved]
  - Abdominal pain upper [Unknown]
  - Somnolence [Unknown]
  - Arthralgia [Recovered/Resolved]
  - Menopausal symptoms [Not Recovered/Not Resolved]
  - Therapeutic response unexpected [Recovering/Resolving]

NARRATIVE: CASE EVENT DATE: 2017
